FAERS Safety Report 7241263-7 (Version None)
Quarter: 2011Q1

REPORT INFORMATION
  Report Type: 
  Country: None (occurrence: None)
  Receive Date: 20110124
  Receipt Date: 20110118
  Transmission Date: 20110831
  Serious: Yes (Hospitalization)
  Sender: FDA-Public Use
  Company Number: A0906913A

PATIENT
  Age: 40 Year
  Sex: Male

DRUGS (6)
  1. VENTOLIN [Suspect]
     Indication: ASTHMA
     Dosage: 1PUFF AS REQUIRED
     Route: 055
     Dates: start: 20060101
  2. ALLERGY MEDICATION [Concomitant]
  3. THYROXIN [Concomitant]
  4. ADVAIR [Suspect]
     Indication: ASTHMA
     Dosage: 1PUFF TWICE PER DAY
     Route: 055
     Dates: start: 20080101
  5. TRIAMCINOLONE OINTMENT [Concomitant]
  6. BENADRYL [Concomitant]

REACTIONS (2)
  - CHEST DISCOMFORT [None]
  - LUNG DISORDER [None]
